FAERS Safety Report 20751789 (Version 15)
Quarter: 2025Q4

REPORT INFORMATION
  Report Type: Report from Study
  Country: US (occurrence: US)
  Receive Date: 20220426
  Receipt Date: 20251231
  Transmission Date: 20260117
  Serious: Yes (Other)
  Sender: PFIZER
  Company Number: US-PFIZER INC-202200333109

PATIENT
  Age: 70 Year
  Sex: Female
  Weight: 49.9 kg

DRUGS (1)
  1. IBRANCE [Suspect]
     Active Substance: PALBOCICLIB
     Indication: Hormone receptor positive breast cancer
     Dosage: ONCE DAILY FOR 21 DAYS FOLLOWED BY 7 DAYS OFF, SWALLOW WHOLE
     Route: 048

REACTIONS (8)
  - Breast cancer [Unknown]
  - Malignant neoplasm progression [Unknown]
  - Metastases to bone [Unknown]
  - Aphonia [Unknown]
  - Laryngitis [Unknown]
  - Nasopharyngitis [Recovering/Resolving]
  - Brain fog [Unknown]
  - Headache [Recovering/Resolving]
